FAERS Safety Report 9563236 (Version 2)
Quarter: 2013Q4

REPORT INFORMATION
  Report Type: Spontaneous
  Country: JP (occurrence: JP)
  Receive Date: 20130927
  Receipt Date: 20131002
  Transmission Date: 20140711
  Serious: Yes (Hospitalization)
  Sender: FDA-Public Use
  Company Number: JP-B.I. PHARMACEUTICALS,INC./RIDGEFIELD-2013-BI-30036NB

PATIENT
  Age: 81 Year
  Sex: Male

DRUGS (2)
  1. MIRAPEX LA [Suspect]
     Indication: PARKINSON^S DISEASE
     Dosage: 1.125 MG
     Route: 065
  2. REQUIP [Concomitant]
     Indication: PARKINSON^S DISEASE
     Dosage: NR
     Route: 065

REACTIONS (2)
  - Injury [Recovered/Resolved]
  - Fall [Unknown]
